FAERS Safety Report 22169319 (Version 9)
Quarter: 2024Q1

REPORT INFORMATION
  Report Type: Report from Study
  Country: FR (occurrence: FR)
  Receive Date: 20230404
  Receipt Date: 20240116
  Transmission Date: 20240410
  Serious: Yes (Hospitalization)
  Sender: FDA-Public Use
  Company Number: FR-SA-SAC20230330000941

PATIENT
  Age: 76 Year
  Sex: Female
  Weight: 43 kg

DRUGS (9)
  1. ISATUXIMAB [Suspect]
     Active Substance: ISATUXIMAB
     Indication: Primary amyloidosis
     Dosage: 450 MG, QOW
     Route: 042
     Dates: start: 20220905, end: 20220905
  2. ISATUXIMAB [Suspect]
     Active Substance: ISATUXIMAB
     Dosage: 450 MG, QOW
     Route: 042
     Dates: start: 20230315, end: 20230315
  3. ISATUXIMAB [Suspect]
     Active Substance: ISATUXIMAB
     Dosage: 450 MG, QOW
     Route: 042
     Dates: start: 20230704, end: 20230704
  4. POMALIDOMIDE [Suspect]
     Active Substance: POMALIDOMIDE
     Indication: Primary amyloidosis
     Dosage: 3 MG
     Route: 048
     Dates: start: 20220905, end: 20220905
  5. POMALIDOMIDE [Suspect]
     Active Substance: POMALIDOMIDE
     Dosage: 3 MG
     Route: 048
     Dates: start: 20230308, end: 20230308
  6. POMALIDOMIDE [Suspect]
     Active Substance: POMALIDOMIDE
     Dosage: 2 MG (DAY 1 TO DAY 21 OR DAY 28)
     Route: 048
     Dates: start: 20230704, end: 20230704
  7. DEXAMETHASONE [Suspect]
     Active Substance: DEXAMETHASONE
     Indication: Primary amyloidosis
     Dosage: 10 MG, QW
     Route: 048
     Dates: start: 20220905, end: 20220905
  8. DEXAMETHASONE [Suspect]
     Active Substance: DEXAMETHASONE
     Dosage: 10 MG, QW
     Route: 048
     Dates: start: 20230224, end: 20230224
  9. DEXAMETHASONE [Suspect]
     Active Substance: DEXAMETHASONE
     Dosage: 10 MG, QW
     Route: 048
     Dates: start: 20230704, end: 20230704

REACTIONS (5)
  - Lung disorder [Recovered/Resolved]
  - Atelectasis [Recovered/Resolved]
  - Actinomycotic pulmonary infection [Recovered/Resolved]
  - Lung disorder [Unknown]
  - Amyloidosis [Recovered/Resolved]

NARRATIVE: CASE EVENT DATE: 20230328
